FAERS Safety Report 8052416-2 (Version None)
Quarter: 2012Q1

REPORT INFORMATION
  Report Type: 
  Country: None (occurrence: None)
  Receive Date: 20120118
  Receipt Date: 20120113
  Transmission Date: 20120608
  Serious: Yes (Other)
  Sender: FDA-Public Use
  Company Number: US-PFIZER INC-2011312497

PATIENT
  Sex: Male
  Weight: 67.12 kg

DRUGS (22)
  1. CELEBREX [Suspect]
     Indication: SPINAL OSTEOARTHRITIS
     Dosage: 200 MG, DAILY
     Route: 048
  2. FLECTOR [Suspect]
     Indication: OSTEOARTHRITIS
  3. VOLTAREN [Suspect]
     Indication: OSTEOARTHRITIS
  4. CYMBALTA [Concomitant]
     Indication: DEPRESSION
     Dosage: 60 MG, DAILY
  5. SINEMET [Concomitant]
     Indication: PARKINSON'S DISEASE
     Dosage: ONE AND HALF TABLET OF 25/100 MG, DAILY
     Route: 048
  6. ICY HOT [Suspect]
     Indication: SPINAL OSTEOARTHRITIS
     Dosage: UNK
  7. VOLTAREN [Suspect]
     Indication: SPINAL OSTEOARTHRITIS
     Dosage: UNK
  8. ORUDIS [Suspect]
     Indication: OSTEOARTHRITIS
  9. VIOXX [Suspect]
     Indication: OSTEOARTHRITIS
  10. ARICEPT [Concomitant]
     Indication: DEMENTIA
  11. CELEBREX [Suspect]
     Indication: OSTEOARTHRITIS
     Dosage: 200 MG, 2X/DAY
     Route: 048
  12. CELEBREX [Suspect]
     Dosage: 200 MG, DAILY
     Route: 048
  13. FLECTOR [Suspect]
     Indication: SPINAL OSTEOARTHRITIS
     Dosage: UNK
  14. CYMBALTA [Concomitant]
     Indication: AFFECTIVE DISORDER
  15. ICY HOT [Suspect]
     Indication: OSTEOARTHRITIS
  16. ORUDIS [Suspect]
     Indication: SPINAL OSTEOARTHRITIS
     Dosage: UNK
  17. ARICEPT [Concomitant]
     Indication: DISTURBANCE IN ATTENTION
  18. CORTISONE [Concomitant]
     Dosage: UNK
  19. ALTACE [Suspect]
     Indication: HYPERTENSION
     Dosage: 5 MG, DAILY
  20. VIOXX [Suspect]
     Indication: SPINAL OSTEOARTHRITIS
     Dosage: UNK
  21. ARICEPT [Concomitant]
     Indication: PARKINSON'S DISEASE
     Dosage: 10 MG, DAILY
  22. TRICOR [Concomitant]
     Indication: BLOOD TRIGLYCERIDES ABNORMAL
     Dosage: 145 MG, DAILY

REACTIONS (8)
  - HYPOTENSION [None]
  - MALAISE [None]
  - SOMNOLENCE [None]
  - DRUG INEFFECTIVE [None]
  - ABDOMINAL DISCOMFORT [None]
  - NAUSEA [None]
  - LOSS OF CONSCIOUSNESS [None]
  - INCORRECT DRUG ADMINISTRATION DURATION [None]
